FAERS Safety Report 14244321 (Version 1)
Quarter: 2017Q4

REPORT INFORMATION
  Report Type: Spontaneous
  Country: JP (occurrence: JP)
  Receive Date: 20171201
  Receipt Date: 20171201
  Transmission Date: 20180321
  Serious: Yes (Other)
  Sender: FDA-Public Use
  Company Number: JP-BAYER-2017-230274

PATIENT
  Sex: Female

DRUGS (2)
  1. YAZ [Suspect]
     Active Substance: DROSPIRENONE\ETHINYL ESTRADIOL
     Route: 048
  2. YAZ [Suspect]
     Active Substance: DROSPIRENONE\ETHINYL ESTRADIOL
     Route: 048

REACTIONS (12)
  - Gastric ulcer [None]
  - Abdominal pain [None]
  - Nausea [None]
  - Intentional product use issue [None]
  - Dehydration [None]
  - Decreased appetite [None]
  - Vomiting [None]
  - Ovulation pain [None]
  - Headache [None]
  - Hyperlipidaemia [None]
  - Fluid intake reduced [None]
  - Weight decreased [None]
